FAERS Safety Report 15681230 (Version 2)
Quarter: 2018Q4

REPORT INFORMATION
  Report Type: Spontaneous
  Country: SE (occurrence: SE)
  Receive Date: 20181203
  Receipt Date: 20181212
  Transmission Date: 20190205
  Serious: Yes (Hospitalization, Other)
  Sender: FDA-Public Use
  Company Number: SE-PFIZER INC-2018493216

PATIENT
  Age: 56 Year
  Sex: Female

DRUGS (1)
  1. DOCETAXEL. [Suspect]
     Active Substance: DOCETAXEL
     Indication: BREAST CANCER
     Dosage: 90 MG/M2, CYCLIC (THREE-WEEK REGIMEN)
     Dates: start: 201801, end: 2018

REACTIONS (2)
  - Photosensitivity reaction [Recovered/Resolved]
  - Recall phenomenon [Recovered/Resolved]

NARRATIVE: CASE EVENT DATE: 2018
